FAERS Safety Report 24404483 (Version 1)
Quarter: 2024Q4

REPORT INFORMATION
  Report Type: Spontaneous
  Country: CN (occurrence: CN)
  Receive Date: 20241007
  Receipt Date: 20241007
  Transmission Date: 20250115
  Serious: No
  Sender: ROCHE
  Company Number: CN-ROCHE-3500948

PATIENT
  Age: 45 Year
  Sex: Female

DRUGS (5)
  1. GAZYVA [Suspect]
     Active Substance: OBINUTUZUMAB
     Indication: B-cell lymphoma
     Dosage: OBINUTUZUMAB AND BENDAMUSTINE 150 MG ON DAY 1, BENDAMUSTINE 150 MG ON DAY 2.
     Route: 042
     Dates: start: 20230203
  2. GAZYVA [Suspect]
     Active Substance: OBINUTUZUMAB
     Dosage: 11 FEB 2023,  21 FEB 2023
     Route: 042
     Dates: start: 20230211
  3. GAZYVA [Suspect]
     Active Substance: OBINUTUZUMAB
     Dosage: 06 MAR 2023, 13 APR 2023, OBINUTUZUMAB AND BENDAMUSTINE 150 MG ON DAY 1, BENDAMUSTINE 150 MG ON DAY
     Route: 042
     Dates: start: 20230306
  4. BENDAMUSTINE [Concomitant]
     Active Substance: BENDAMUSTINE
     Indication: B-cell lymphoma
     Dosage: OBINUTUZUMAB AND BENDAMUSTINE 150 MG ON DAY 1, BENDAMUSTINE 150 MG ON DAY 2.
     Dates: start: 20230203
  5. BENDAMUSTINE [Concomitant]
     Active Substance: BENDAMUSTINE
     Dosage: 06 MAR 2023, ON 13 APR 2023, OBINUTUZUMAB AND BENDAMUSTINE 150 MG ON DAY 1, BENDAMUSTINE 150 MG ON D
     Dates: start: 20230306

REACTIONS (2)
  - Off label use [Unknown]
  - No adverse event [Unknown]

NARRATIVE: CASE EVENT DATE: 20230203
